FAERS Safety Report 4879776-5 (Version None)
Quarter: 2006Q1

REPORT INFORMATION
  Report Type: 
  Country: None (occurrence: None)
  Receive Date: 20060113
  Receipt Date: 20051214
  Transmission Date: 20060701
  Serious: Yes (Hospitalization)
  Sender: FDA-Public Use
  Company Number: JP-JPN-A20053078

PATIENT
  Age: 67 Year
  Sex: Male

DRUGS (8)
  1. SEREVENT [Suspect]
     Indication: CHRONIC OBSTRUCTIVE PULMONARY DISEASE
     Dosage: 50MCG TWICE PER DAY
     Route: 055
     Dates: start: 20041115, end: 20050212
  2. TERSIGAN [Concomitant]
     Route: 055
  3. UNIPHYL [Concomitant]
     Route: 048
  4. TIOTROPIUM BROMIDE [Concomitant]
     Route: 048
  5. CRAVIT [Concomitant]
     Route: 048
  6. PENTCILLIN [Concomitant]
     Route: 042
  7. TAMIFLU [Concomitant]
     Route: 048
  8. SAWACILLIN [Concomitant]
     Route: 048

REACTIONS (1)
  - CHRONIC OBSTRUCTIVE PULMONARY DISEASE [None]
